FAERS Safety Report 7717156-5 (Version None)
Quarter: 2011Q3

REPORT INFORMATION
  Report Type: 
  Country: None (occurrence: None)
  Receive Date: 20110826
  Receipt Date: 20110826
  Transmission Date: 20111222
  Serious: No
  Sender: FDA-Public Use
  Company Number: None

PATIENT
  Sex: Female

DRUGS (1)
  1. INCIVEK [Suspect]
     Dosage: 750MG TID ORALLY
     Route: 048
     Dates: start: 20110729, end: 20110816

REACTIONS (4)
  - HEADACHE [None]
  - CHILLS [None]
  - NAUSEA [None]
  - PYREXIA [None]
